FAERS Safety Report 15764938 (Version 2)
Quarter: 2019Q1

REPORT INFORMATION
  Report Type: Report from Study
  Country: US (occurrence: US)
  Receive Date: 20181227
  Receipt Date: 20190116
  Transmission Date: 20190417
  Serious: Yes (Hospitalization, Other)
  Sender: FDA-Public Use
  Company Number: US-SA-2017SA125564

PATIENT
  Age: 61 Year
  Sex: Female

DRUGS (4)
  1. ALEMTUZUMAB [Suspect]
     Active Substance: ALEMTUZUMAB
     Dosage: 12 MG, 1X
     Route: 041
     Dates: start: 20160209, end: 20160209
  2. ALEMTUZUMAB [Suspect]
     Active Substance: ALEMTUZUMAB
     Dosage: 12 MG, QD
     Route: 041
     Dates: start: 20160201, end: 20160204
  3. ALEMTUZUMAB [Suspect]
     Active Substance: ALEMTUZUMAB
     Indication: MULTIPLE SCLEROSIS
     Dosage: 12 MG,QD
     Route: 041
     Dates: start: 20170703, end: 20170705
  4. ALEMTUZUMAB [Suspect]
     Active Substance: ALEMTUZUMAB
     Dosage: 12 UNK
     Route: 041

REACTIONS (7)
  - Infection [Not Recovered/Not Resolved]
  - Diplegia [Unknown]
  - Bedridden [Not Recovered/Not Resolved]
  - Hypersensitivity [Unknown]
  - Monoplegia [Not Recovered/Not Resolved]
  - Pyrexia [Unknown]
  - Incontinence [Not Recovered/Not Resolved]

NARRATIVE: CASE EVENT DATE: 201707
